FAERS Safety Report 8969117 (Version 1)
Quarter: 2012Q4

REPORT INFORMATION
  Report Type: Report from Study
  Country: FI (occurrence: FI)
  Receive Date: 20121217
  Receipt Date: 20121217
  Transmission Date: 20130627
  Serious: Yes (Hospitalization)
  Sender: FDA-Public Use
  Company Number: FI-PFIZER INC-2012314519

PATIENT
  Age: 66 Year
  Sex: Male
  Weight: 85 kg

DRUGS (8)
  1. IRINOTECAN HCL [Suspect]
     Indication: COLORECTAL CANCER METASTATIC
     Dosage: 500 mg, UNK
     Route: 042
     Dates: start: 20100526, end: 20100616
  2. FLUOROURACIL [Suspect]
     Indication: COLORECTAL CANCER METASTATIC
     Route: 065
  3. BEVACIZUMAB [Suspect]
     Indication: COLORECTAL CANCER METASTATIC
     Dosage: 638 mg, cyclic, every 21 days
     Route: 042
     Dates: start: 20091127
  4. OXALIPLATIN [Suspect]
     Indication: COLORECTAL CANCER METASTATIC
     Dosage: 270mg, 1 in 21 D
     Route: 042
     Dates: start: 20091127
  5. OXALIPLATIN [Suspect]
     Dosage: Three weekly, 202mg, 1 in 21D
     Route: 042
     Dates: start: 20091229
  6. PANITUMUMAB [Suspect]
     Indication: COLORECTAL CANCER METASTATIC
     Dosage: 738 mg, UNK
     Route: 042
     Dates: start: 20100526, end: 20100616
  7. CAPECITABINE [Concomitant]
     Indication: COLORECTAL CANCER METASTATIC
     Dosage: 2000mg, 2 in 1 D
     Route: 048
     Dates: start: 20091127, end: 20091211
  8. CAPECITABINE [Concomitant]
     Dosage: Daily for 2 of 3 weeks, 2500mg, 2 in 1 D
     Route: 048
     Dates: start: 20091229

REACTIONS (2)
  - Sinusitis [Recovered/Resolved]
  - Diarrhoea [Recovered/Resolved]
